FAERS Safety Report 7076293-1 (Version None)
Quarter: 2010Q4

REPORT INFORMATION
  Report Type: 
  Country: None (occurrence: None)
  Receive Date: 20101101
  Receipt Date: 20100928
  Transmission Date: 20110411
  Serious: No
  Sender: FDA-Public Use
  Company Number: US-BAYER-201036624NA

PATIENT
  Age: 54 Year
  Sex: Male
  Weight: 113 kg

DRUGS (1)
  1. BETASERON [Suspect]
     Indication: MULTIPLE SCLEROSIS
     Dosage: AS USED: 8 MIU
     Route: 058
     Dates: start: 20050122

REACTIONS (1)
  - CONTUSION [None]
